FAERS Safety Report 23215352 (Version 1)
Quarter: 2023Q4

REPORT INFORMATION
  Report Type: Spontaneous
  Country: US (occurrence: US)
  Receive Date: 20231122
  Receipt Date: 20231122
  Transmission Date: 20240110
  Serious: Yes (Other)
  Sender: FDA-Public Use
  Company Number: US-AUROBINDO-AUR-APL-2023-073912

PATIENT
  Age: 11 Year
  Sex: Male

DRUGS (2)
  1. ACYCLOVIR [Suspect]
     Active Substance: ACYCLOVIR
     Indication: Herpes zoster
     Dosage: UNK
     Route: 048
  2. ACYCLOVIR [Suspect]
     Active Substance: ACYCLOVIR
     Dosage: 45 MILLIGRAM/KILOGRAM, 3 TIMES A DAY
     Route: 042

REACTIONS (2)
  - Lymphopenia [Recovered/Resolved]
  - Drug ineffective [Unknown]
